FAERS Safety Report 15559893 (Version 1)
Quarter: 2018Q4

REPORT INFORMATION
  Report Type: Spontaneous
  Country: US (occurrence: US)
  Receive Date: 20181027
  Receipt Date: 20181027
  Transmission Date: 20190205
  Serious: Yes (Other)
  Sender: FDA-Public Use
  Company Number: None

PATIENT
  Age: 66 Year
  Sex: Male
  Weight: 101.25 kg

DRUGS (10)
  1. TORIDOL [Concomitant]
  2. HYDROCODONE [Concomitant]
     Active Substance: HYDROCODONE
  3. FISH OIL [Concomitant]
     Active Substance: FISH OIL
  4. TUMERIC [Concomitant]
     Active Substance: HERBALS\TURMERIC
  5. SAM-E [Concomitant]
     Active Substance: ADEMETIONINE
  6. BABY ASPIRIN [Concomitant]
     Active Substance: ASPIRIN
  7. COQ10 [Concomitant]
     Active Substance: UBIDECARENONE
  8. MULTI-VITAMIN [Concomitant]
     Active Substance: .ALPHA.-TOCOPHEROL ACETATE, DL-\ASCORBIC ACID\CYANOCOBALAMIN\FLUORIDE ION\FOLIC ACID\NIACIN\PYRIDOXINE\RIBOFLAVIN\THIAMINE\VITAMIN A\VITAMIN D
  9. EXPAREL [Suspect]
     Active Substance: BUPIVACAINE
     Indication: PAIN
     Dosage: ?          OTHER ROUTE:APPLIED DURING SURGERY?
     Dates: start: 20181026, end: 20181026
  10. TRAMIDOL [Concomitant]

REACTIONS (1)
  - Myalgia [None]

NARRATIVE: CASE EVENT DATE: 20181027
